FAERS Safety Report 19707016 (Version 1)
Quarter: 2021Q3

REPORT INFORMATION
  Report Type: Spontaneous
  Country: US (occurrence: US)
  Receive Date: 20210816
  Receipt Date: 20210816
  Transmission Date: 20211014
  Serious: No
  Sender: FDA-Public Use
  Company Number: None

PATIENT
  Age: 55 Year
  Sex: Female

DRUGS (2)
  1. NAPROXEN (NAPROXEN 250MG TAB) [Suspect]
     Active Substance: NAPROXEN
     Indication: PAIN
     Dates: start: 20210601, end: 20210629
  2. CLOPIDOGREL (CLOPIDOGREL BISULFATE 75MG TAB) [Suspect]
     Active Substance: CLOPIDOGREL BISULFATE
     Indication: CARDIOVASCULAR EVENT PROPHYLAXIS
     Dates: start: 20190925, end: 20210721

REACTIONS (3)
  - Gastric haemorrhage [None]
  - Microcytic anaemia [None]
  - Iron deficiency anaemia [None]

NARRATIVE: CASE EVENT DATE: 20210629
